FAERS Safety Report 22799606 (Version 8)
Quarter: 2024Q2

REPORT INFORMATION
  Report Type: Spontaneous
  Country: JP (occurrence: JP)
  Receive Date: 20230808
  Receipt Date: 20240405
  Transmission Date: 20240716
  Serious: Yes (Death, Hospitalization)
  Sender: FDA-Public Use
  Company Number: JP-JNJFOC-20230814338

PATIENT
  Age: 50 Year
  Sex: Male

DRUGS (5)
  1. OPSUMIT [Suspect]
     Active Substance: MACITENTAN
     Indication: Pulmonary arterial hypertension
     Dosage: DOSE UNKNOWN
     Route: 048
     Dates: start: 20230314, end: 20230803
  2. UPTRAVI [Suspect]
     Active Substance: SELEXIPAG
     Indication: Pulmonary arterial hypertension
     Dosage: THERAPY END DATE: //2023
     Route: 048
     Dates: start: 20230314
  3. UPTRAVI [Suspect]
     Active Substance: SELEXIPAG
     Dosage: THERAPY START DATE: //2023
     Route: 048
     Dates: end: 20231208
  4. OXYGEN [Concomitant]
     Active Substance: OXYGEN
     Indication: Right ventricular failure
     Dosage: 7L/MIN
     Route: 055
  5. OXYGEN [Concomitant]
     Active Substance: OXYGEN
     Dosage: 8L/MIN
     Route: 055

REACTIONS (2)
  - Pulmonary arterial hypertension [Fatal]
  - Right ventricular failure [Not Recovered/Not Resolved]

NARRATIVE: CASE EVENT DATE: 20230101
